FAERS Safety Report 10449110 (Version 1)
Quarter: 2014Q3

REPORT INFORMATION
  Report Type: Spontaneous
  Country: US (occurrence: None)
  Receive Date: 20140911
  Receipt Date: 20140911
  Transmission Date: 20150326
  Serious: Yes (Disabling)
  Sender: FDA-Public Use
  Company Number: None

PATIENT
  Age: 63 Year
  Sex: Female
  Weight: 103.42 kg

DRUGS (11)
  1. BUPROPION [Concomitant]
     Active Substance: BUPROPION
  2. COPAXONE [Suspect]
     Active Substance: GLATIRAMER ACETATE
     Indication: MULTIPLE SCLEROSIS
     Dosage: 20 MG 7X WC 2004?40 MG 3X//WK 2014 SYRING 12 SINGLE DOSE PRE FILLED
     Dates: start: 200401
  3. ALLEGRA [Concomitant]
     Active Substance: FEXOFENADINE HYDROCHLORIDE
  4. ASPIRIN. [Concomitant]
     Active Substance: ASPIRIN
  5. PAROXETINE [Concomitant]
     Active Substance: PAROXETINE\PAROXETINE HYDROCHLORIDE
  6. RISPERIDONE. [Concomitant]
     Active Substance: RISPERIDONE
  7. TRAZODONE [Concomitant]
     Active Substance: TRAZODONE HYDROCHLORIDE
  8. COLACE [Concomitant]
     Active Substance: DOCUSATE SODIUM
  9. CLONAZEPAM. [Concomitant]
     Active Substance: CLONAZEPAM
  10. MELATONIN [Concomitant]
     Active Substance: MELATONIN
  11. COPAXONE [Concomitant]
     Active Substance: GLATIRAMER ACETATE

REACTIONS (4)
  - Rash [None]
  - Pruritus [None]
  - Weight increased [None]
  - Tremor [None]

NARRATIVE: CASE EVENT DATE: 20130515
